FAERS Safety Report 10085462 (Version 2)
Quarter: 2014Q2

REPORT INFORMATION
  Report Type: Spontaneous
  Country: US (occurrence: US)
  Receive Date: 20140418
  Receipt Date: 20140418
  Transmission Date: 20141212
  Serious: Yes (Other)
  Sender: FDA-Public Use
  Company Number: US-ROCHE-1333914

PATIENT
  Age: 62 Year
  Sex: Female

DRUGS (5)
  1. PEGASYS [Suspect]
     Indication: CHRONIC HEPATITIS C
     Route: 058
     Dates: start: 20131217, end: 20131220
  2. RIBASPHERE [Concomitant]
     Dosage: 400 MG AM?600 MG PM
     Route: 048
     Dates: start: 20131217, end: 20140320
  3. LISINOPRIL [Concomitant]
  4. AMBIEN [Concomitant]
     Route: 048
  5. LISINOPRIL/HCTZ [Concomitant]
     Indication: HYPERTENSION
     Route: 065
     Dates: end: 20140113

REACTIONS (5)
  - White blood cell count decreased [Unknown]
  - Dizziness [Unknown]
  - Pruritus [Unknown]
  - Irritability [Unknown]
  - Myalgia [Recovering/Resolving]
